FAERS Safety Report 4493172-4 (Version None)
Quarter: 2004Q4

REPORT INFORMATION
  Report Type: 
  Country: None (occurrence: None)
  Receive Date: 20041029
  Receipt Date: 20041021
  Transmission Date: 20050328
  Serious: Yes (Death)
  Sender: FDA-Public Use
  Company Number: 2004240898US

PATIENT
  Age: 63 Year
  Sex: Male

DRUGS (1)
  1. CELEBREX [Suspect]
     Indication: OSTEOARTHRITIS
     Dosage: ORAL
     Route: 048
     Dates: start: 20020101

REACTIONS (5)
  - CIRCULATORY COLLAPSE [None]
  - MYOCARDIAL RUPTURE [None]
  - NASOPHARYNGITIS [None]
  - RESPIRATORY FAILURE [None]
  - THROMBOSIS [None]
